FAERS Safety Report 16652101 (Version 1)
Quarter: 2019Q3

REPORT INFORMATION
  Report Type: Spontaneous
  Country: US (occurrence: US)
  Receive Date: 20190731
  Receipt Date: 20190731
  Transmission Date: 20191004
  Serious: No
  Sender: FDA-Public Use
  Company Number: US-B.I. PHARMACEUTICALS,INC./RIDGEFIELD-2019-US-000915

PATIENT
  Age: 76 Year
  Sex: Male

DRUGS (1)
  1. SPIRIVA RESPIMAT [Suspect]
     Active Substance: TIOTROPIUM BROMIDE
     Indication: CHRONIC OBSTRUCTIVE PULMONARY DISEASE
     Dosage: TWO PUFFS DAILY OF THE 2.5MCG INHALER
     Route: 055
     Dates: start: 20190724, end: 20190724

REACTIONS (4)
  - Burning sensation [Not Recovered/Not Resolved]
  - Product taste abnormal [Not Recovered/Not Resolved]
  - Incorrect route of product administration [Recovered/Resolved]
  - Oral discomfort [Not Recovered/Not Resolved]

NARRATIVE: CASE EVENT DATE: 20190724
